FAERS Safety Report 6279992-4 (Version None)
Quarter: 2009Q3

REPORT INFORMATION
  Report Type: 
  Country: None (occurrence: None)
  Receive Date: 20090723
  Receipt Date: 20090421
  Transmission Date: 20100115
  Serious: No
  Sender: FDA-Public Use
  Company Number: US-AMGEN-KDL343959

PATIENT
  Sex: Female
  Weight: 50.8 kg

DRUGS (5)
  1. PROCRIT [Suspect]
     Indication: ANAEMIA
     Dates: start: 20090408
  2. DIOVAN [Concomitant]
  3. STOOL SOFTENER [Concomitant]
  4. VITAMIN B COMPLEX CAP [Concomitant]
  5. VERAPAMIL [Concomitant]

REACTIONS (2)
  - FATIGUE [None]
  - MALAISE [None]
